FAERS Safety Report 14487457 (Version 8)
Quarter: 2018Q2

REPORT INFORMATION
  Report Type: Spontaneous
  Country: DE (occurrence: DE)
  Receive Date: 20180205
  Receipt Date: 20180525
  Transmission Date: 20180711
  Serious: Yes (Death, Life-Threatening, Hospitalization, Other)
  Sender: FDA-Public Use
  Company Number: PHHY2018DE015537

PATIENT
  Age: 87 Year
  Sex: Male

DRUGS (28)
  1. PREDNISOLON [Suspect]
     Active Substance: PREDNISOLONE
     Dosage: 30 MG, QD (DAILY DOSE: 30 MG MILLIGRAM(S) EVERY DAY)
     Route: 048
     Dates: start: 20161222
  2. MADOPAR [Suspect]
     Active Substance: BENSERAZIDE HYDROCHLORIDE\LEVODOPA
     Indication: PRODUCT USED FOR UNKNOWN INDICATION
     Dosage: 500 MG, QD
     Route: 048
  3. SERTRALINE [Concomitant]
     Active Substance: SERTRALINE HYDROCHLORIDE
     Indication: PRODUCT USED FOR UNKNOWN INDICATION
     Dosage: 75 MG, QD
     Route: 048
     Dates: end: 20161128
  4. ABILIFY [Suspect]
     Active Substance: ARIPIPRAZOLE
     Indication: PRODUCT USED FOR UNKNOWN INDICATION
     Dosage: 5 MG, QD
     Route: 048
     Dates: start: 20161208, end: 20161209
  5. ABILIFY [Suspect]
     Active Substance: ARIPIPRAZOLE
     Dosage: 15 MG, QD
     Route: 048
     Dates: start: 20161225
  6. MIRTAZAPIN [Concomitant]
     Active Substance: MIRTAZAPINE
     Indication: PRODUCT USED FOR UNKNOWN INDICATION
     Dosage: 1 DF, UNK (1 DF=0-30 MG)
     Route: 048
     Dates: start: 20161122
  7. CEFUROXIM [Concomitant]
     Active Substance: CEFUROXIME
     Dosage: 1000 MG, QD
     Route: 048
     Dates: start: 20161225
  8. PANTOPRAZOL [Concomitant]
     Active Substance: PANTOPRAZOLE SODIUM
     Indication: PRODUCT USED FOR UNKNOWN INDICATION
     Dosage: 20 MG, QD
     Route: 048
  9. ABILIFY [Suspect]
     Active Substance: ARIPIPRAZOLE
     Dosage: 10 MG, QD
     Route: 048
     Dates: start: 20161210, end: 20161212
  10. MADOPAR [Suspect]
     Active Substance: BENSERAZIDE HYDROCHLORIDE\LEVODOPA
     Dosage: 500 MG, QD
     Route: 048
     Dates: start: 20161225
  11. MADOPAR [Suspect]
     Active Substance: BENSERAZIDE HYDROCHLORIDE\LEVODOPA
     Dosage: 1 DF, QD (STARTED SINCE MONTHS (1 DF= 187.5 MG TO 125 MG)
     Route: 048
     Dates: end: 20161225
  12. SERTRALINE [Concomitant]
     Active Substance: SERTRALINE HYDROCHLORIDE
     Dosage: 100 MG, QD
     Route: 048
     Dates: start: 20161129, end: 20161205
  13. FOLSAEURE [Concomitant]
     Active Substance: FOLIC ACID
     Indication: PRODUCT USED FOR UNKNOWN INDICATION
     Dosage: 0.4 MG, QD
     Route: 048
  14. PREDNISOLON [Suspect]
     Active Substance: PREDNISOLONE
     Indication: PRODUCT USED FOR UNKNOWN INDICATION
     Dosage: 30 MG, QD STARTED SINCE WEEKS
     Route: 048
     Dates: end: 20161221
  15. SERTRALINE [Concomitant]
     Active Substance: SERTRALINE HYDROCHLORIDE
     Dosage: 125 MG, QD
     Route: 048
     Dates: start: 20161225
  16. MIRTAZAPIN [Concomitant]
     Active Substance: MIRTAZAPINE
     Dosage: 1 DF, UNK (1 DF=0-30 MG)
     Route: 048
     Dates: start: 20161225
  17. CEFUROXIM [Concomitant]
     Active Substance: CEFUROXIME
     Indication: PRODUCT USED FOR UNKNOWN INDICATION
     Dosage: 1000 MG, QD
     Route: 048
     Dates: start: 20161223
  18. QUETIAPIN [Concomitant]
     Active Substance: QUETIAPINE
     Dosage: UNK
     Route: 065
  19. CLEXANE [Concomitant]
     Active Substance: ENOXAPARIN SODIUM
     Dosage: 1 ML, QD
     Route: 058
     Dates: start: 20161225
  20. ACC [Concomitant]
     Active Substance: ACETYLCYSTEINE
     Indication: PRODUCT USED FOR UNKNOWN INDICATION
     Dosage: 600 MG, QD
     Route: 048
     Dates: start: 20161225
  21. ABILIFY [Suspect]
     Active Substance: ARIPIPRAZOLE
     Dosage: 15 MG, QD
     Route: 048
     Dates: start: 20161213
  22. SERTRALINE [Concomitant]
     Active Substance: SERTRALINE HYDROCHLORIDE
     Dosage: 125 MG, QD
     Route: 048
     Dates: start: 20161206
  23. CLEXANE [Concomitant]
     Active Substance: ENOXAPARIN SODIUM
     Indication: PRODUCT USED FOR UNKNOWN INDICATION
     Dosage: 1 ML, QD
     Route: 058
  24. FOLSAEURE [Concomitant]
     Active Substance: FOLIC ACID
     Dosage: 0.4 MG, QD
     Route: 048
     Dates: start: 20161225
  25. PANTOPRAZOL [Concomitant]
     Active Substance: PANTOPRAZOLE SODIUM
     Dosage: 20 MG, QD
     Route: 048
     Dates: start: 20161225
  26. FOLIC ACID. [Concomitant]
     Active Substance: FOLIC ACID
     Indication: PRODUCT USED FOR UNKNOWN INDICATION
     Dosage: 0.4 MG, QD (STARTED SINCE WEEKS)
     Route: 048
     Dates: end: 20161225
  27. PREDNISOLON [Suspect]
     Active Substance: PREDNISOLONE
     Dosage: 20 MG, QD
     Route: 048
     Dates: start: 20161222
  28. QUETIAPIN [Concomitant]
     Active Substance: QUETIAPINE
     Indication: PRODUCT USED FOR UNKNOWN INDICATION
     Dosage: 50 MG, UNK
     Route: 065

REACTIONS (14)
  - Atrial fibrillation [Unknown]
  - Laboratory test abnormal [Fatal]
  - Pneumonia [Fatal]
  - C-reactive protein increased [Fatal]
  - Sinus bradycardia [Fatal]
  - Aspiration [Fatal]
  - Cardiopulmonary failure [Fatal]
  - Pneumonia [Fatal]
  - Dysphagia [Fatal]
  - Loss of consciousness [Fatal]
  - Productive cough [Fatal]
  - Fluid intake reduced [Fatal]
  - Pyrexia [Fatal]
  - Dyspnoea [Fatal]

NARRATIVE: CASE EVENT DATE: 20161223
